FAERS Safety Report 26012629 (Version 1)
Quarter: 2025Q4

REPORT INFORMATION
  Report Type: Spontaneous
  Country: EU (occurrence: EU)
  Receive Date: 20251107
  Receipt Date: 20251107
  Transmission Date: 20260118
  Serious: Yes (Hospitalization)
  Sender: MYLAN
  Company Number: EU-STADA-01453209

PATIENT
  Age: 82 Year
  Sex: Male

DRUGS (20)
  1. GABAPENTIN [Suspect]
     Active Substance: GABAPENTIN
     Indication: Product used for unknown indication
     Dosage: UNK
  2. GABAPENTIN [Suspect]
     Active Substance: GABAPENTIN
     Dosage: UNK
     Route: 065
  3. GABAPENTIN [Suspect]
     Active Substance: GABAPENTIN
     Dosage: UNK
     Route: 065
  4. GABAPENTIN [Suspect]
     Active Substance: GABAPENTIN
     Dosage: UNK
  5. TERIPARATIDE [Suspect]
     Active Substance: TERIPARATIDE
     Indication: Osteoporosis
     Dosage: 1 DOSAGE FORM, QD (20 MICROGRAM/80 MICROLITER INJECTION SOLUTION)
  6. TERIPARATIDE [Suspect]
     Active Substance: TERIPARATIDE
     Dosage: 1 DOSAGE FORM, QD (20 MICROGRAM/80 MICROLITER INJECTION SOLUTION)
     Route: 058
  7. TERIPARATIDE [Suspect]
     Active Substance: TERIPARATIDE
     Dosage: 1 DOSAGE FORM, QD (20 MICROGRAM/80 MICROLITER INJECTION SOLUTION)
     Route: 058
  8. TERIPARATIDE [Suspect]
     Active Substance: TERIPARATIDE
     Dosage: 1 DOSAGE FORM, QD (20 MICROGRAM/80 MICROLITER INJECTION SOLUTION)
  9. LEVETIRACETAM [Concomitant]
     Active Substance: LEVETIRACETAM
     Dosage: UNK
  10. LEVETIRACETAM [Concomitant]
     Active Substance: LEVETIRACETAM
     Dosage: UNK
     Route: 065
  11. LEVETIRACETAM [Concomitant]
     Active Substance: LEVETIRACETAM
     Dosage: UNK
     Route: 065
  12. LEVETIRACETAM [Concomitant]
     Active Substance: LEVETIRACETAM
     Dosage: UNK
  13. FENTANYL [Concomitant]
     Active Substance: FENTANYL
     Dosage: UNK
  14. FENTANYL [Concomitant]
     Active Substance: FENTANYL
     Dosage: UNK
     Route: 065
  15. FENTANYL [Concomitant]
     Active Substance: FENTANYL
     Dosage: UNK
     Route: 065
  16. FENTANYL [Concomitant]
     Active Substance: FENTANYL
     Dosage: UNK
  17. EUTHYROX [Concomitant]
     Active Substance: LEVOTHYROXINE SODIUM
     Dosage: UNK
  18. EUTHYROX [Concomitant]
     Active Substance: LEVOTHYROXINE SODIUM
     Dosage: UNK
     Route: 065
  19. EUTHYROX [Concomitant]
     Active Substance: LEVOTHYROXINE SODIUM
     Dosage: UNK
     Route: 065
  20. EUTHYROX [Concomitant]
     Active Substance: LEVOTHYROXINE SODIUM
     Dosage: UNK

REACTIONS (3)
  - Hypoglycaemic seizure [Recovered/Resolved]
  - Hypoglycaemia [Not Recovered/Not Resolved]
  - Therapy interrupted [Not Recovered/Not Resolved]
